FAERS Safety Report 14478995 (Version 2)
Quarter: 2018Q2

REPORT INFORMATION
  Report Type: Report from Study
  Country: US (occurrence: US)
  Receive Date: 20180202
  Receipt Date: 20180608
  Transmission Date: 20180711
  Serious: Yes (Hospitalization, Other)
  Sender: FDA-Public Use
  Company Number: US-BRISTOL-MYERS SQUIBB COMPANY-BMS-2018-007461

PATIENT
  Sex: Female
  Weight: 102.4 kg

DRUGS (3)
  1. APIXABAN [Suspect]
     Active Substance: APIXABAN
     Indication: CARDIAC FAILURE CONGESTIVE
     Dosage: 5 MG, BID
     Route: 048
     Dates: start: 2017, end: 201712
  2. APIXABAN [Suspect]
     Active Substance: APIXABAN
     Indication: CEREBROVASCULAR ACCIDENT PROPHYLAXIS
     Dosage: 5 MG, BID
     Route: 048
     Dates: start: 2017, end: 2017
  3. APIXABAN [Suspect]
     Active Substance: APIXABAN
     Indication: PRODUCT USED FOR UNKNOWN INDICATION
     Dosage: 5 MG, BID
     Route: 048

REACTIONS (3)
  - Asthenia [Unknown]
  - Intestinal mass [Unknown]
  - Spinal pain [Unknown]

NARRATIVE: CASE EVENT DATE: 2017
